FAERS Safety Report 12277389 (Version 1)
Quarter: 2016Q2

REPORT INFORMATION
  Report Type: Spontaneous
  Country: FR (occurrence: FR)
  Receive Date: 20160418
  Receipt Date: 20160418
  Transmission Date: 20160815
  Serious: Yes (Other)
  Sender: FDA-Public Use
  Company Number: FR-009507513-1602FRA002754

PATIENT
  Age: 66 Year
  Sex: Male

DRUGS (4)
  1. TAHOR [Suspect]
     Active Substance: ATORVASTATIN CALCIUM
     Indication: HYPERCHOLESTEROLAEMIA
     Dosage: 20 MG, QD
     Route: 048
  2. KEYTRUDA [Suspect]
     Active Substance: PEMBROLIZUMAB
     Indication: METASTATIC MALIGNANT MELANOMA
     Dosage: 150 MG PER CYCLE
     Route: 042
     Dates: start: 20150717, end: 20151210
  3. IMOVANE [Concomitant]
     Active Substance: ZOPICLONE
  4. ODRIK [Concomitant]
     Active Substance: TRANDOLAPRIL

REACTIONS (4)
  - Adrenal insufficiency [Recovering/Resolving]
  - Hepatitis [Recovered/Resolved]
  - Hypothyroidism [Recovered/Resolved]
  - Myalgia [Recovered/Resolved]
